FAERS Safety Report 16822134 (Version 1)
Quarter: 2019Q4

REPORT INFORMATION
  Report Type: Spontaneous
  Country: US (occurrence: US)
  Receive Date: 20190918
  Receipt Date: 20190918
  Transmission Date: 20200122
  Serious: Yes (Other)
  Sender: FDA-Public Use
  Company Number: None

PATIENT
  Age: 6 Month
  Sex: Female
  Weight: 72 kg

DRUGS (9)
  1. MURO 128 [Suspect]
     Active Substance: SODIUM CHLORIDE
     Indication: CORNEAL DYSTROPHY
     Dosage: ?          QUANTITY:1 ^SQUIRT^ THIN LINE;?
     Route: 047
     Dates: start: 20190904, end: 20190915
  2. MULTI-VITAMIN [Concomitant]
     Active Substance: .ALPHA.-TOCOPHEROL ACETATE, DL-\ASCORBIC ACID\CYANOCOBALAMIN\FLUORIDE ION\FOLIC ACID\NIACIN\PYRIDOXINE\RIBOFLAVIN\THIAMINE\VITAMIN A\VITAMIN D
  3. JANUVIA [Concomitant]
     Active Substance: SITAGLIPTIN PHOSPHATE
  4. PRAVASTATIN. [Concomitant]
     Active Substance: PRAVASTATIN
  5. GLIMEPIRIDE. [Concomitant]
     Active Substance: GLIMEPIRIDE
  6. ASPIRIN. [Concomitant]
     Active Substance: ASPIRIN
  7. TURMERIC [Concomitant]
     Active Substance: HERBALS\TURMERIC
  8. PACEMAKER [Concomitant]
  9. OMEGA 3 [Concomitant]
     Active Substance: OMEGA-3 FATTY ACIDS

REACTIONS (7)
  - Skin disorder [None]
  - Chest pain [None]
  - Dysphagia [None]
  - Chest discomfort [None]
  - Dyspepsia [None]
  - Urticaria [None]
  - Pruritus [None]

NARRATIVE: CASE EVENT DATE: 20190905
